FAERS Safety Report 8220149-5 (Version None)
Quarter: 2012Q1

REPORT INFORMATION
  Report Type: 
  Country: None (occurrence: None)
  Receive Date: 20120320
  Receipt Date: 20120309
  Transmission Date: 20120608
  Serious: Yes (Hospitalization)
  Sender: FDA-Public Use
  Company Number: US-BAYER-2011-085294

PATIENT
  Age: 18 Year
  Sex: Female
  Weight: 59 kg

DRUGS (6)
  1. YAZ [Suspect]
     Indication: ACNE
     Dosage: UNK
     Dates: start: 20050101, end: 20060101
  2. PREDNISONE [Concomitant]
     Indication: CROHN'S DISEASE
  3. YASMIN [Suspect]
     Indication: PREMENSTRUAL SYNDROME
  4. XANAX [Concomitant]
  5. YAZ [Suspect]
     Indication: PREMENSTRUAL SYNDROME
  6. YASMIN [Suspect]
     Indication: ACNE
     Dosage: UNK
     Dates: start: 20050101, end: 20060101

REACTIONS (8)
  - EMOTIONAL DISTRESS [None]
  - ANHEDONIA [None]
  - GENERAL PHYSICAL HEALTH DETERIORATION [None]
  - BILIARY DYSKINESIA [None]
  - ANXIETY [None]
  - PAIN [None]
  - CHOLECYSTECTOMY [None]
  - INJURY [None]
